FAERS Safety Report 7211566-0 (Version None)
Quarter: 2011Q1

REPORT INFORMATION
  Report Type: 
  Country: None (occurrence: None)
  Receive Date: 20110105
  Receipt Date: 20101217
  Transmission Date: 20110831
  Serious: No
  Sender: FDA-Public Use
  Company Number: US-B.I. PHARMACEUTICALS,INC./RIDGEFIELD-2010-BP-15131BP

PATIENT
  Age: 93 Year
  Sex: Female

DRUGS (2)
  1. PRADAXA [Suspect]
     Route: 048
     Dates: start: 20101204
  2. BACTRIM [Suspect]
     Indication: JOINT SWELLING
     Route: 048
     Dates: start: 20101206, end: 20101211

REACTIONS (4)
  - JOINT SWELLING [None]
  - FALL [None]
  - GAIT DISTURBANCE [None]
  - JOINT INJURY [None]
